FAERS Safety Report 7214765-7 (Version None)
Quarter: 2011Q1

REPORT INFORMATION
  Report Type: 
  Country: None (occurrence: None)
  Receive Date: 20110107
  Receipt Date: 20100201
  Transmission Date: 20110831
  Serious: No
  Sender: FDA-Public Use
  Company Number: A0842352A

PATIENT
  Age: 60 Year
  Sex: Female

DRUGS (2)
  1. LOVAZA [Suspect]
     Indication: BLOOD CHOLESTEROL INCREASED
     Dosage: 1CAP FOUR TIMES PER DAY
     Route: 048
     Dates: start: 20091118, end: 20091118
  2. SYNTHROID [Concomitant]

REACTIONS (2)
  - ERYTHEMA [None]
  - FEELING HOT [None]
